FAERS Safety Report 9684243 (Version 1)
Quarter: 2013Q4

REPORT INFORMATION
  Report Type: Spontaneous
  Country: US (occurrence: None)
  Receive Date: 20131111
  Receipt Date: 20131111
  Transmission Date: 20140711
  Serious: No
  Sender: FDA-Public Use
  Company Number: None

PATIENT
  Age: 53 Year
  Sex: Female
  Weight: 75.75 kg

DRUGS (1)
  1. AVELOX [Suspect]
     Dosage: 1 ONCE DAILY

REACTIONS (7)
  - Dizziness [None]
  - Paraesthesia [None]
  - Hypoaesthesia [None]
  - Hypersensitivity [None]
  - Hypoaesthesia oral [None]
  - Muscle twitching [None]
  - Dysphagia [None]
